FAERS Safety Report 4264612-0 (Version None)
Quarter: 2004Q1

REPORT INFORMATION
  Report Type: 
  Country: None (occurrence: None)
  Receive Date: 20040106
  Receipt Date: 20031226
  Transmission Date: 20041129
  Serious: Yes (Hospitalization)
  Sender: FDA-Public Use
  Company Number: JP-ROCHE-354865

PATIENT
  Sex: Female

DRUGS (6)
  1. ROCEPHIN [Suspect]
     Indication: DRUG USE FOR UNKNOWN INDICATION
     Dosage: ROUTE REPORTED AS DRIP. STRENGTH REPORTED AS 1 G BID.
     Route: 050
     Dates: start: 20031101, end: 20031104
  2. VOLTAREN [Suspect]
     Route: 065
  3. ZITHROMAX [Concomitant]
  4. TRANSAMIN [Concomitant]
  5. DASEN [Concomitant]
  6. CELESTAMINE TAB [Concomitant]
     Route: 055

REACTIONS (1)
  - HEPATIC FUNCTION ABNORMAL [None]
